FAERS Safety Report 16777033 (Version 3)
Quarter: 2019Q4

REPORT INFORMATION
  Report Type: Spontaneous
  Country: US (occurrence: US)
  Receive Date: 20190905
  Receipt Date: 20191209
  Transmission Date: 20200122
  Serious: Yes (Other)
  Sender: FDA-Public Use
  Company Number: US-AMGEN-USASP2019140598

PATIENT
  Age: 70 Year
  Sex: Female
  Weight: 47.17 kg

DRUGS (6)
  1. CREATINE [Concomitant]
     Active Substance: CREATINE
     Indication: MITOCHONDRIAL MYOPATHY
     Dosage: 1000 MILLIGRAM
  2. COQ 10 [Concomitant]
     Active Substance: UBIDECARENONE
     Indication: MITOCHONDRIAL MYOPATHY
     Dosage: 600 MILLIGRAM
  3. FOLATE [Concomitant]
     Active Substance: FOLATE SODIUM
     Indication: MITOCHONDRIAL MYOPATHY
     Dosage: 800 MICROGRAM
  4. CARNITINE [Concomitant]
     Active Substance: CARNITINE
     Indication: MITOCHONDRIAL MYOPATHY
     Dosage: 500 MILLIGRAM
  5. PROLIA [Suspect]
     Active Substance: DENOSUMAB
     Indication: OSTEOPOROSIS POSTMENOPAUSAL
     Dosage: 60 MILLIGRAM, Q6MO
     Route: 058
     Dates: start: 2017
  6. EZETIMIBE. [Concomitant]
     Active Substance: EZETIMIBE
     Indication: LOW DENSITY LIPOPROTEIN ABNORMAL
     Dosage: 10 MILLIGRAM, QD

REACTIONS (14)
  - Connective tissue inflammation [Unknown]
  - Mitochondrial myopathy [Not Recovered/Not Resolved]
  - Alopecia [Not Recovered/Not Resolved]
  - Low density lipoprotein increased [Not Recovered/Not Resolved]
  - Cerebrovascular disorder [Unknown]
  - Pain in extremity [Unknown]
  - Burning sensation [Not Recovered/Not Resolved]
  - Fat necrosis [Unknown]
  - Dermatitis [Unknown]
  - Limb mass [Recovered/Resolved]
  - Atrial septal defect [Unknown]
  - Soft tissue necrosis [Unknown]
  - Soft tissue inflammation [Unknown]
  - Muscle spasms [Unknown]

NARRATIVE: CASE EVENT DATE: 201709
